FAERS Safety Report 6589613-9 (Version None)
Quarter: 2010Q1

REPORT INFORMATION
  Report Type: 
  Country: None (occurrence: None)
  Receive Date: 20100212
  Receipt Date: 20100121
  Transmission Date: 20100710
  Serious: Yes (Other)
  Sender: FDA-Public Use
  Company Number: 005145

PATIENT
  Age: 87 Year
  Sex: Female

DRUGS (11)
  1. MACUGEN [Suspect]
     Dosage: INTRAOCULAR
     Route: 031
     Dates: start: 20090705
  2. PROGESTERONE [Concomitant]
  3. TRAZODONE HCL [Concomitant]
  4. ADDERALL 30 [Concomitant]
  5. LIPITOR [Concomitant]
  6. LEXAPRO [Concomitant]
  7. METOPROLOL TARTRATE [Concomitant]
  8. PLAVIX [Concomitant]
  9. AVAPRO [Concomitant]
  10. VIVELLE [Concomitant]
  11. FORTEO INJECTIONS [Concomitant]

REACTIONS (1)
  - ENDOPHTHALMITIS [None]
